FAERS Safety Report 21236688 (Version 1)
Quarter: 2022Q3

REPORT INFORMATION
  Report Type: Spontaneous
  Country: JP (occurrence: JP)
  Receive Date: 20220822
  Receipt Date: 20220822
  Transmission Date: 20221027
  Serious: Yes (Other)
  Sender: FDA-Public Use
  Company Number: JP-NBI-J202101081

PATIENT

DRUGS (3)
  1. PRAMIPEXOLE [Suspect]
     Active Substance: PRAMIPEXOLE
     Indication: Parkinson^s disease
     Route: 048
  2. PRAMIPEXOLE [Suspect]
     Active Substance: PRAMIPEXOLE
     Route: 048
  3. DOPAMIN [Concomitant]
     Indication: Product used for unknown indication
     Route: 048

REACTIONS (4)
  - Drug dependence [Unknown]
  - Gambling disorder [Unknown]
  - Dyskinesia [Unknown]
  - Therapeutic response shortened [Unknown]
